FAERS Safety Report 8392808-5 (Version None)
Quarter: 2012Q2

REPORT INFORMATION
  Report Type: 
  Country: None (occurrence: None)
  Receive Date: 20120529
  Receipt Date: 20120516
  Transmission Date: 20120825
  Serious: Yes (Hospitalization)
  Sender: FDA-Public Use
  Company Number: US-ELI_LILLY_AND_COMPANY-US201202001629

PATIENT
  Sex: Female

DRUGS (8)
  1. CALCIUM [Concomitant]
  2. FORTEO [Suspect]
     Dosage: 20 UG, QD
     Route: 065
  3. CRESTOR [Concomitant]
  4. ASPIRIN [Concomitant]
  5. VITAMIN D [Concomitant]
  6. FORTEO [Suspect]
     Indication: OSTEOPOROSIS
     Dosage: 20 UG, QD
     Route: 065
     Dates: start: 20111001
  7. PLAVIX [Concomitant]
  8. FORTEO [Suspect]
     Dosage: 20 UG, QD
     Route: 065

REACTIONS (7)
  - DEHYDRATION [None]
  - FATIGUE [None]
  - CATARACT [None]
  - VOMITING [None]
  - BLOOD ELECTROLYTES ABNORMAL [None]
  - MALAISE [None]
  - NAUSEA [None]
